FAERS Safety Report 8123555-2 (Version None)
Quarter: 2012Q1

REPORT INFORMATION
  Report Type: 
  Country: None (occurrence: None)
  Receive Date: 20120208
  Receipt Date: 20120201
  Transmission Date: 20120608
  Serious: Yes (Hospitalization, Other)
  Sender: FDA-Public Use
  Company Number: PHHY2010US41212

PATIENT
  Sex: Female

DRUGS (11)
  1. EXTAVIA [Suspect]
     Dosage: 0.062 MG, QOD
     Route: 058
  2. ADVAIR DISKUS 100/50 [Suspect]
     Dosage: UNK
  3. ALBUTEROL [Concomitant]
  4. EXTAVIA [Suspect]
     Dosage: UNK
     Route: 058
  5. KLONOPIN [Concomitant]
     Dosage: HALF TABLET AT HOURS OF SLEEP
  6. FLEXERIL [Concomitant]
     Dosage: 10 MG, BID
  7. FLEXERIL [Concomitant]
     Dosage: 10 MG, QD
  8. IBUPROFEN [Concomitant]
     Dosage: 800 MG, BID
  9. EXTAVIA [Suspect]
     Indication: MULTIPLE SCLEROSIS
     Dosage: 0.062 MG, QOD
     Route: 058
  10. EXTAVIA [Suspect]
     Dosage: 0.125 MG, QOD
     Route: 058
     Dates: start: 20100518
  11. KLONOPIN [Concomitant]
     Dosage: 0.5 MG, QHS

REACTIONS (10)
  - PARAESTHESIA [None]
  - INFLUENZA LIKE ILLNESS [None]
  - PAIN [None]
  - PYREXIA [None]
  - PULMONARY CONGESTION [None]
  - DRUG HYPERSENSITIVITY [None]
  - OESOPHAGEAL RUPTURE [None]
  - ASTHMA [None]
  - SCRATCH [None]
  - SINUSITIS [None]
